FAERS Safety Report 10745998 (Version 1)
Quarter: 2015Q1

REPORT INFORMATION
  Report Type: Spontaneous
  Country: DE (occurrence: DE)
  Receive Date: 20150128
  Receipt Date: 20150128
  Transmission Date: 20150721
  Serious: Yes (Congenital Anomaly, Other)
  Sender: FDA-Public Use
  Company Number: DE-MYLANLABS-2015M1001704

PATIENT

DRUGS (7)
  1. CALCIUM [Concomitant]
     Active Substance: CALCIUM
     Dosage: IN TRIMESTER
     Route: 064
  2. ETANERCEPT [Concomitant]
     Active Substance: ETANERCEPT
     Dosage: IN TRIMESTER 1
     Route: 064
  3. METHOTREXATE [Suspect]
     Active Substance: METHOTREXATE
     Dosage: 12.5 MG/WEEK UP TO 8 WEEKS BEFORE LMP
     Route: 064
  4. IBUPROFEN. [Concomitant]
     Active Substance: IBUPROFEN
     Dosage: IN TRIMESTER
     Route: 064
  5. PARACETAMOL [Concomitant]
     Active Substance: ACETAMINOPHEN
     Dosage: IN TRIMESTER
     Route: 064
  6. PREDNISONE. [Concomitant]
     Active Substance: PREDNISONE
     Dosage: IN TRIMESTERS 1-3
     Route: 064
  7. VITAMIN D                          /00107901/ [Concomitant]
     Active Substance: ERGOCALCIFEROL
     Dosage: IN TRIMESTER
     Route: 064

REACTIONS (2)
  - Foetal exposure during pregnancy [Unknown]
  - Cataract congenital [Unknown]
